FAERS Safety Report 5474430-3 (Version None)
Quarter: 2007Q4

REPORT INFORMATION
  Report Type: 
  Country: None (occurrence: None)
  Receive Date: 20071002
  Receipt Date: 20070928
  Transmission Date: 20080405
  Serious: Yes (Hospitalization)
  Sender: FDA-Public Use
  Company Number: US-BRISTOL-MYERS SQUIBB COMPANY-13923701

PATIENT
  Age: 58 Year
  Sex: Female
  Weight: 91 kg

DRUGS (3)
  1. PRAVACHOL [Suspect]
     Route: 048
     Dates: end: 20070601
  2. RISPERDAL [Concomitant]
     Route: 048
  3. LEVOTHYROXINE SODIUM [Concomitant]
     Route: 048

REACTIONS (3)
  - MYOCARDIAL INFARCTION [None]
  - RENAL FAILURE [None]
  - RHABDOMYOLYSIS [None]
